FAERS Safety Report 5256577-X (Version None)
Quarter: 2007Q1

REPORT INFORMATION
  Report Type: 
  Country: None (occurrence: None)
  Receive Date: 20070306
  Receipt Date: 20070223
  Transmission Date: 20070707
  Serious: Yes (Other)
  Sender: FDA-Public Use
  Company Number: PHHO2006TR19794

PATIENT
  Age: 41 Year
  Sex: Female

DRUGS (1)
  1. TELBIVUDINE (LDT) [Suspect]
     Indication: HEPATITIS B
     Dosage: 600 MG, UNK
     Route: 048
     Dates: start: 20060118

REACTIONS (4)
  - DEAFNESS [None]
  - DIZZINESS [None]
  - TINNITUS [None]
  - UPPER RESPIRATORY TRACT INFECTION [None]
